FAERS Safety Report 18525345 (Version 1)
Quarter: 2020Q4

REPORT INFORMATION
  Report Type: Spontaneous
  Country: CN (occurrence: CN)
  Receive Date: 20201120
  Receipt Date: 20201120
  Transmission Date: 20210114
  Serious: Yes (Other)
  Sender: FDA-Public Use
  Company Number: CN-009507513-2011CHN011420

PATIENT
  Age: 55 Year
  Sex: Female
  Weight: 56 kg

DRUGS (2)
  1. KEYTRUDA [Suspect]
     Active Substance: PEMBROLIZUMAB
     Indication: NEOPLASM
     Dosage: 200 MILLIGRAM, ONCE PER DAY (QD)
     Route: 041
     Dates: start: 20201031, end: 20201101
  2. CARBOPLATIN. [Suspect]
     Active Substance: CARBOPLATIN
     Indication: NEOPLASM
     Dosage: 400 MILLIGRAM, ONCE PER (QD)
     Route: 041
     Dates: start: 20201030, end: 20201031

REACTIONS (1)
  - Myelosuppression [Recovering/Resolving]

NARRATIVE: CASE EVENT DATE: 20201102
